FAERS Safety Report 20129663 (Version 1)
Quarter: 2021Q4

REPORT INFORMATION
  Report Type: Spontaneous
  Country: US (occurrence: None)
  Receive Date: 20211129
  Receipt Date: 20211129
  Transmission Date: 20220304
  Serious: Yes (Other)
  Sender: FDA-Public Use
  Company Number: None

PATIENT
  Age: 37 Year
  Sex: Female

DRUGS (2)
  1. PHENTERMINE [Suspect]
     Active Substance: PHENTERMINE
  2. ORLISTAT [Suspect]
     Active Substance: ORLISTAT

REACTIONS (1)
  - Treatment failure [None]

NARRATIVE: CASE EVENT DATE: 20211129
